FAERS Safety Report 23033282 (Version 4)
Quarter: 2023Q4

REPORT INFORMATION
  Report Type: Other
  Country: BR (occurrence: None)
  Receive Date: 20231005
  Receipt Date: 20231219
  Transmission Date: 20240110
  Serious: No
  Sender: FDA-Public Use
  Company Number: BR-ROCHE-2599367

PATIENT
  Age: 52 Year
  Sex: Female
  Weight: 70 kg

DRUGS (16)
  1. OCRELIZUMAB [Suspect]
     Active Substance: OCRELIZUMAB
     Indication: Primary progressive multiple sclerosis
     Dosage: 300 MG/250 ML, START TIME: 11.30, END TIME: 15.11
     Route: 042
     Dates: start: 20200416, end: 20200416
  2. OCRELIZUMAB [Suspect]
     Active Substance: OCRELIZUMAB
     Dosage: 600 MG/ 500 ML, START TIME: 10.30, END TIME: 16.00?SUBSEQUENT DOSES OF OCRELIZUMAB: 08/APR/2021, 24/
     Route: 042
     Dates: start: 20201015, end: 20201015
  3. VENLAFAXINE [Concomitant]
     Active Substance: VENLAFAXINE HYDROCHLORIDE
     Route: 048
     Dates: start: 2009
  4. RIVOTRIL [Concomitant]
     Active Substance: CLONAZEPAM
     Route: 048
     Dates: start: 2009
  5. METHYLPREDNISOLONE [Concomitant]
     Active Substance: METHYLPREDNISOLONE
     Indication: Premedication
     Route: 042
     Dates: start: 20200416, end: 20200416
  6. METHYLPREDNISOLONE [Concomitant]
     Active Substance: METHYLPREDNISOLONE
     Route: 042
     Dates: start: 20201015, end: 20201015
  7. FEXOFENADINE [Concomitant]
     Active Substance: FEXOFENADINE HYDROCHLORIDE
     Indication: Premedication
     Route: 048
     Dates: start: 20200416, end: 20200416
  8. FEXOFENADINE [Concomitant]
     Active Substance: FEXOFENADINE HYDROCHLORIDE
     Route: 048
     Dates: start: 20201015, end: 20201015
  9. METAMIZOLE SODIUM [Concomitant]
     Active Substance: METAMIZOLE SODIUM
     Indication: Premedication
     Dosage: G/2 ML?1 OTHER
     Route: 042
     Dates: start: 20200416, end: 20200416
  10. METAMIZOLE SODIUM [Concomitant]
     Active Substance: METAMIZOLE SODIUM
     Dosage: G/2 ML
     Route: 042
     Dates: start: 20200430, end: 20200430
  11. METAMIZOLE SODIUM [Concomitant]
     Active Substance: METAMIZOLE SODIUM
     Dosage: G/2 ML
     Route: 042
     Dates: start: 20201015, end: 20201015
  12. SOLU-MEDROL [Concomitant]
     Active Substance: METHYLPREDNISOLONE SODIUM SUCCINATE
     Indication: Premedication
     Route: 042
     Dates: start: 20200430, end: 20200430
  13. ALLEGRA [Concomitant]
     Active Substance: FEXOFENADINE HYDROCHLORIDE
     Indication: Premedication
     Route: 048
     Dates: start: 20200430, end: 20200430
  14. SAFFRON [Concomitant]
     Active Substance: SAFFRON
     Dates: start: 202008
  15. CRANBERRY [Concomitant]
     Active Substance: CRANBERRY
     Dosage: 1 UNKNOWN
     Dates: start: 2021
  16. CIPROFLOXACIN [Concomitant]
     Active Substance: CIPROFLOXACIN
     Route: 048
     Dates: start: 202109, end: 202109

REACTIONS (3)
  - Infusion related reaction [Recovered/Resolved]
  - Urinary tract infection [Recovered/Resolved]
  - COVID-19 [Recovered/Resolved]

NARRATIVE: CASE EVENT DATE: 20200416
